FAERS Safety Report 22008836 (Version 3)
Quarter: 2023Q1

REPORT INFORMATION
  Report Type: Other
  Country: US (occurrence: None)
  Receive Date: 20230219
  Receipt Date: 20230316
  Transmission Date: 20230418
  Serious: Yes (Other)
  Sender: FDA-Public Use
  Company Number: US-ROCHE-3288513

PATIENT
  Age: 48 Year
  Sex: Female

DRUGS (2)
  1. OCRELIZUMAB [Suspect]
     Active Substance: OCRELIZUMAB
     Indication: Demyelination
     Dosage: 2 INFUSIONS
     Route: 042
     Dates: start: 202203
  2. INTERFERON BETA-1A [Concomitant]
     Active Substance: INTERFERON BETA-1A
     Route: 058
     Dates: start: 2016

REACTIONS (2)
  - Pancreatitis haemorrhagic [Recovered/Resolved]
  - Off label use [Unknown]
